FAERS Safety Report 19421951 (Version 1)
Quarter: 2021Q2

REPORT INFORMATION
  Report Type: Spontaneous
  Country: US (occurrence: US)
  Receive Date: 20210616
  Receipt Date: 20210616
  Transmission Date: 20210717
  Serious: Yes (Other)
  Sender: FDA-Public Use
  Company Number: US-CELGENEUS-USA-20210602634

PATIENT
  Sex: Female
  Weight: 90.8 kg

DRUGS (4)
  1. REVLIMID [Suspect]
     Active Substance: LENALIDOMIDE
     Dosage: 10 MILLIGRAM
     Route: 048
     Dates: start: 201906
  2. REVLIMID [Suspect]
     Active Substance: LENALIDOMIDE
     Indication: PLASMA CELL MYELOMA
     Dosage: 25 MILLIGRAM
     Route: 048
     Dates: start: 201809
  3. REVLIMID [Suspect]
     Active Substance: LENALIDOMIDE
     Dosage: 5 MILLIGRAM
     Route: 048
     Dates: start: 201909
  4. OPIOIDS [Concomitant]
     Active Substance: UNSPECIFIED INGREDIENT
     Indication: PRODUCT USED FOR UNKNOWN INDICATION
     Route: 065

REACTIONS (7)
  - Mineral deficiency [Unknown]
  - Spinal fracture [Unknown]
  - Immunodeficiency [Unknown]
  - Bone disorder [Unknown]
  - Disturbance in attention [Unknown]
  - Insomnia [Unknown]
  - Myocardial infarction [Unknown]
